FAERS Safety Report 19588820 (Version 1)
Quarter: 2021Q3

REPORT INFORMATION
  Report Type: Spontaneous
  Country: BE (occurrence: BE)
  Receive Date: 20210721
  Receipt Date: 20210721
  Transmission Date: 20211014
  Serious: Yes (Hospitalization)
  Sender: FDA-Public Use
  Company Number: BE-ALSI-2021000209

PATIENT
  Sex: Male

DRUGS (2)
  1. OXYGEN. [Suspect]
     Active Substance: OXYGEN
     Indication: RESPIRATORY FAILURE
     Route: 055
     Dates: start: 20210706, end: 20210707
  2. OXYGEN. [Suspect]
     Active Substance: OXYGEN
     Route: 055
     Dates: start: 20210708, end: 20210709

REACTIONS (2)
  - Epistaxis [Unknown]
  - Condition aggravated [Unknown]
